FAERS Safety Report 8599037-0 (Version None)
Quarter: 2012Q3

REPORT INFORMATION
  Report Type: 
  Country: None (occurrence: None)
  Receive Date: 20120816
  Receipt Date: 20120813
  Transmission Date: 20120928
  Serious: Yes (Hospitalization)
  Sender: FDA-Public Use
  Company Number: US-GLAXOSMITHKLINE-A0981340A

PATIENT
  Age: 66 Year
  Sex: Female

DRUGS (3)
  1. NICODERM CQ [Suspect]
     Indication: SMOKING CESSATION THERAPY
     Route: 062
  2. ADVIL [Suspect]
  3. PROTONIX [Suspect]

REACTIONS (3)
  - INCOHERENT [None]
  - CEREBROVASCULAR ACCIDENT [None]
  - DRUG SCREEN FALSE POSITIVE [None]
